FAERS Safety Report 8444795-9 (Version None)
Quarter: 2012Q2

REPORT INFORMATION
  Report Type: 
  Country: None (occurrence: None)
  Receive Date: 20120612
  Receipt Date: 20120612
  Transmission Date: 20120825
  Serious: Yes (Other)
  Sender: FDA-Public Use
  Company Number: None

PATIENT
  Age: 60 Year
  Sex: Female
  Weight: 51.7101 kg

DRUGS (5)
  1. BENADRYL [Concomitant]
  2. HYDROCORTISONE CREAM [Concomitant]
  3. PREDNISONE [Concomitant]
  4. RITE AID COMPARE TO EUCERIN MOIS 160Z -11B- 454 G RITE AID CORPORATION [Suspect]
     Indication: DRY SKIN
     Dosage: USED HAND FULS 2-3 TIMES TOP
     Route: 061
     Dates: start: 20120531, end: 20120604
  5. LEVOCETERIZINE [Concomitant]

REACTIONS (6)
  - NEUROTOXICITY [None]
  - PRODUCT SUBSTITUTION ISSUE [None]
  - VOMITING [None]
  - DEHYDRATION [None]
  - ANGIOEDEMA [None]
  - NAUSEA [None]
